FAERS Safety Report 17293943 (Version 1)
Quarter: 2020Q1

REPORT INFORMATION
  Report Type: Spontaneous
  Country: US (occurrence: US)
  Receive Date: 20200120
  Receipt Date: 20200120
  Transmission Date: 20200409
  Serious: Yes (Life-Threatening, Disabling, Other)
  Sender: FDA-Public Use
  Company Number: None

PATIENT
  Age: 59 Year
  Sex: Female
  Weight: 43.2 kg

DRUGS (8)
  1. DIAZEPAM. [Concomitant]
     Active Substance: DIAZEPAM
  2. GEMFIBROZIL. [Concomitant]
     Active Substance: GEMFIBROZIL
  3. AMLODIPINE [Concomitant]
     Active Substance: AMLODIPINE BESYLATE
  4. PLAVIX [Concomitant]
     Active Substance: CLOPIDOGREL BISULFATE
  5. NITROGLYCERIN. [Concomitant]
     Active Substance: NITROGLYCERIN
  6. LEVOFLOXACIN. [Suspect]
     Active Substance: LEVOFLOXACIN
     Indication: PNEUMONIA
     Dosage: ?          QUANTITY:1 TABLET(S);?
     Route: 048
     Dates: start: 20200115, end: 20200120
  7. PREVESTATIN [Concomitant]
  8. HYDROCODONE [Concomitant]
     Active Substance: HYDROCODONE

REACTIONS (12)
  - Myalgia [None]
  - Vision blurred [None]
  - Hypoaesthesia [None]
  - Burning sensation [None]
  - Eye pain [None]
  - Dizziness [None]
  - Tendon pain [None]
  - Insomnia [None]
  - Pain in extremity [None]
  - Tremor [None]
  - Headache [None]
  - Anxiety [None]

NARRATIVE: CASE EVENT DATE: 20200117
